FAERS Safety Report 9910505 (Version 1)
Quarter: 2014Q1

REPORT INFORMATION
  Report Type: Report from Study
  Country: US (occurrence: US)
  Receive Date: 20140219
  Receipt Date: 20140219
  Transmission Date: 20141002
  Serious: Yes (Other)
  Sender: FDA-Public Use
  Company Number: US-B.I. PHARMACEUTICALS,INC./RIDGEFIELD-2014-BI-07159GD

PATIENT
  Sex: 0

DRUGS (1)
  1. PRAMIPEXOLE [Suspect]
     Indication: RESTLESS LEGS SYNDROME
     Dosage: 0.25 MG
     Route: 048

REACTIONS (1)
  - Restless legs syndrome [Unknown]
